FAERS Safety Report 20779828 (Version 1)
Quarter: 2022Q2

REPORT INFORMATION
  Report Type: Spontaneous
  Country: JP (occurrence: JP)
  Receive Date: 20220503
  Receipt Date: 20220503
  Transmission Date: 20220721
  Serious: Yes (Hospitalization, Congenital Anomaly)
  Sender: FDA-Public Use
  Company Number: JP-TEVA-2022-JP-2033229

PATIENT

DRUGS (1)
  1. CELECOXIB [Suspect]
     Active Substance: CELECOXIB
     Indication: Tocolysis
     Dosage: 200 MILLIGRAM DAILY;
     Route: 064

REACTIONS (4)
  - Blood pressure systolic increased [Recovered/Resolved]
  - Patent ductus arteriosus [Recovered/Resolved]
  - Foetal exposure during pregnancy [Unknown]
  - Off label use [Unknown]
